FAERS Safety Report 15027586 (Version 2)
Quarter: 2018Q2

REPORT INFORMATION
  Report Type: Spontaneous
  Country: SE (occurrence: SE)
  Receive Date: 20180619
  Receipt Date: 20180622
  Transmission Date: 20180711
  Serious: Yes (Other)
  Sender: FDA-Public Use
  Company Number: SE-TEVA-2018-SE-907528

PATIENT
  Age: 28 Year
  Sex: Female

DRUGS (2)
  1. LEVETIRACETAM ACTAVIS [Suspect]
     Active Substance: LEVETIRACETAM
     Dosage: 1500 MILLIGRAM DAILY;
     Route: 048
  2. LEVETIRACETAM ACTAVIS [Suspect]
     Active Substance: LEVETIRACETAM
     Indication: EPILEPSY
     Dosage: 1000 MILLIGRAM DAILY;
     Route: 048
     Dates: start: 201001

REACTIONS (9)
  - Disturbance in attention [Unknown]
  - Limbic encephalitis [Not Recovered/Not Resolved]
  - Learning disorder [Unknown]
  - Muscular weakness [Unknown]
  - Cognitive disorder [Unknown]
  - Weight decreased [Unknown]
  - Memory impairment [Unknown]
  - Fatigue [Unknown]
  - Eczema [Recovering/Resolving]

NARRATIVE: CASE EVENT DATE: 201801
